FAERS Safety Report 10984104 (Version 1)
Quarter: 2015Q2

REPORT INFORMATION
  Report Type: Report from Study
  Country: US (occurrence: US)
  Receive Date: 20150403
  Receipt Date: 20150403
  Transmission Date: 20150821
  Serious: Yes (Death)
  Sender: FDA-Public Use
  Company Number: US-JNJFOC-20150402477

PATIENT
  Age: 79 Year
  Sex: Male
  Weight: 65 kg

DRUGS (12)
  1. MIRTAZAPINE. [Concomitant]
     Active Substance: MIRTAZAPINE
  2. FERROUS SULFATE [Concomitant]
     Active Substance: FERROUS SULFATE\FERROUS SULFATE, DRIED
  3. FAMOTIDINE. [Concomitant]
     Active Substance: FAMOTIDINE
  4. POSACONAZOLE [Concomitant]
     Active Substance: POSACONAZOLE
  5. DIPHENOXYLATE HCL + ATROPINE SULFATE [Concomitant]
  6. IBRUTINIB [Suspect]
     Active Substance: IBRUTINIB
     Indication: CHRONIC LYMPHOCYTIC LEUKAEMIA
     Route: 048
     Dates: start: 20141013, end: 20150302
  7. CAMPHOR [Concomitant]
     Active Substance: CAMPHOR
  8. METOPROLOL [Concomitant]
     Active Substance: METOPROLOL
  9. FLOMAX [Concomitant]
     Active Substance: TAMSULOSIN HYDROCHLORIDE
  10. INSULIN [Concomitant]
     Active Substance: INSULIN NOS
  11. ONDANSETRON [Concomitant]
     Active Substance: ONDANSETRON
  12. AMPHOTERICIN B. [Concomitant]
     Active Substance: AMPHOTERICIN B

REACTIONS (1)
  - Death [Fatal]

NARRATIVE: CASE EVENT DATE: 20150304
